FAERS Safety Report 4354006-1 (Version None)
Quarter: 2004Q2

REPORT INFORMATION
  Report Type: 
  Country: None (occurrence: None)
  Receive Date: 20040506
  Receipt Date: 20040405
  Transmission Date: 20050107
  Serious: No
  Sender: FDA-Public Use
  Company Number: US-GLAXOSMITHKLINE-A0505951A

PATIENT
  Age: 43 Year
  Sex: Female

DRUGS (7)
  1. AVANDAMET [Suspect]
     Route: 048
     Dates: start: 20040301
  2. PAXIL [Concomitant]
  3. SINGULAIR [Concomitant]
  4. PRILOSEC [Concomitant]
  5. DITROPAN [Concomitant]
  6. FISH OIL [Concomitant]
  7. ALBUTEROL [Concomitant]

REACTIONS (1)
  - PRURITUS [None]
